FAERS Safety Report 24416058 (Version 2)
Quarter: 2025Q1

REPORT INFORMATION
  Report Type: Report from Study
  Country: VE (occurrence: VE)
  Receive Date: 20241009
  Receipt Date: 20250122
  Transmission Date: 20250408
  Serious: Yes (Hospitalization, Other)
  Sender: TAKEDA
  Company Number: VE-TAKEDA-2024TUS098291

PATIENT
  Sex: Male

DRUGS (1)
  1. PONATINIB [Suspect]
     Active Substance: PONATINIB
     Indication: Chronic myeloid leukaemia

REACTIONS (5)
  - Blast crisis in myelogenous leukaemia [Unknown]
  - Bone marrow failure [Unknown]
  - Chest pain [Unknown]
  - Bone pain [Unknown]
  - Pyrexia [Unknown]
